FAERS Safety Report 14538958 (Version 1)
Quarter: 2018Q1

REPORT INFORMATION
  Report Type: Spontaneous
  Country: US (occurrence: US)
  Receive Date: 20180216
  Receipt Date: 20180216
  Transmission Date: 20180509
  Serious: No
  Sender: FDA-Public Use
  Company Number: US-BAYER-2018-025177

PATIENT
  Age: 77 Year
  Sex: Male
  Weight: 81 kg

DRUGS (3)
  1. MIRALAX [Suspect]
     Active Substance: POLYETHYLENE GLYCOL 3350
     Indication: GASTROINTESTINAL DISORDER
     Dosage: PACKET A DAY DOSE
     Dates: start: 20180129, end: 20180204
  2. METHOTREXATE. [Concomitant]
     Active Substance: METHOTREXATE
  3. MIRALAX [Suspect]
     Active Substance: POLYETHYLENE GLYCOL 3350
     Indication: GASTROINTESTINAL DISORDER
     Dosage: 1 CAPFUL A DAY DOSE
     Route: 048
     Dates: start: 20180131, end: 20180202

REACTIONS (2)
  - Flatulence [Unknown]
  - Expired product administered [Unknown]

NARRATIVE: CASE EVENT DATE: 20180131
